FAERS Safety Report 9274513 (Version 1)
Quarter: 2013Q2

REPORT INFORMATION
  Report Type: Spontaneous
  Country: IN (occurrence: IN)
  Receive Date: 20130507
  Receipt Date: 20130507
  Transmission Date: 20140414
  Serious: Yes (Disabling, Other)
  Sender: FDA-Public Use
  Company Number: IN-ROCHE-1221412

PATIENT
  Age: 78 Year
  Sex: Male

DRUGS (1)
  1. LUCENTIS [Suspect]
     Indication: RETINAL VEIN OCCLUSION
     Route: 050
     Dates: start: 20130325

REACTIONS (2)
  - Carotid artery occlusion [Unknown]
  - Retinal artery occlusion [Not Recovered/Not Resolved]
